FAERS Safety Report 11569384 (Version 1)
Quarter: 2015Q3

REPORT INFORMATION
  Report Type: Spontaneous
  Country: US (occurrence: US)
  Receive Date: 20150929
  Receipt Date: 20150929
  Transmission Date: 20151125
  Serious: No
  Sender: FDA-Public Use
  Company Number: US-BAYER-2015-430908

PATIENT
  Age: 84 Year
  Sex: Male
  Weight: 74.83 kg

DRUGS (8)
  1. CARVEDILOL. [Concomitant]
     Active Substance: CARVEDILOL
  2. DELSYM [Concomitant]
     Active Substance: DEXTROMETHORPHAN
  3. CLARITIN REDITABS [Suspect]
     Active Substance: LORATADINE
     Route: 048
  4. WARFARIN [Concomitant]
     Active Substance: WARFARIN
  5. ASMANEX [Concomitant]
     Active Substance: MOMETASONE FUROATE
  6. HYDRALAZINE [Concomitant]
     Active Substance: HYDRALAZINE HYDROCHLORIDE
  7. SPIRIVA [Concomitant]
     Active Substance: TIOTROPIUM BROMIDE MONOHYDRATE
  8. PROVENTIL HFA [Concomitant]
     Active Substance: ALBUTEROL SULFATE

REACTIONS (2)
  - Product use issue [None]
  - Productive cough [None]

NARRATIVE: CASE EVENT DATE: 20150923
